FAERS Safety Report 26165992 (Version 2)
Quarter: 2025Q4

REPORT INFORMATION
  Report Type: Spontaneous
  Country: GB (occurrence: GB)
  Receive Date: 20251216
  Receipt Date: 20251231
  Transmission Date: 20260118
  Serious: No
  Sender: BOEHRINGER INGELHEIM
  Company Number: GB-BoehringerIngelheim-2025-BI-114214

PATIENT
  Age: 10 Year
  Sex: Female
  Weight: 31.20 kg

DRUGS (1)
  1. AFATINIB [Suspect]
     Active Substance: AFATINIB
     Indication: Brain stem glioma
     Dosage: PROPOSED DURATION OF TREATMENT:?DEPENDENT ON RESPONSE TO TREATMENT AND TOLERANCE
     Dates: start: 20251002, end: 20251126

REACTIONS (1)
  - Off label use [Unknown]
